FAERS Safety Report 5643013-4 (Version None)
Quarter: 2008Q1

REPORT INFORMATION
  Report Type: 
  Country: None (occurrence: None)
  Receive Date: 20080226
  Receipt Date: 20080219
  Transmission Date: 20080703
  Serious: Yes (Other)
  Sender: FDA-Public Use
  Company Number: 2007SP024709

PATIENT
  Age: 80 Year
  Sex: Male

DRUGS (4)
  1. CLARITIN [Suspect]
     Indication: ECZEMA
     Dosage: 10 MG; QD; PO
     Route: 048
     Dates: start: 20071108, end: 20071109
  2. BETAMETHASONE [Concomitant]
  3. CINAL [Concomitant]
  4. MAGNESIUM [Concomitant]

REACTIONS (3)
  - ANAEMIA [None]
  - BLOOD PRESSURE DECREASED [None]
  - LOSS OF CONSCIOUSNESS [None]
